FAERS Safety Report 8036628-X (Version None)
Quarter: 2012Q1

REPORT INFORMATION
  Report Type: 
  Country: None (occurrence: None)
  Receive Date: 20120111
  Receipt Date: 20120103
  Transmission Date: 20120608
  Serious: Yes (Death)
  Sender: FDA-Public Use
  Company Number: US-JNJFOC-20120101861

PATIENT
  Age: 70 Year
  Sex: Male

DRUGS (1)
  1. MYLANTA UNSPECIFIED [Suspect]
     Indication: PRODUCT USED FOR UNKNOWN INDICATION
     Route: 048

REACTIONS (2)
  - METASTASES TO LIVER [None]
  - GASTRIC CANCER [None]
